FAERS Safety Report 19047343 (Version 3)
Quarter: 2022Q1

REPORT INFORMATION
  Report Type: Report from Study
  Country: CN (occurrence: None)
  Receive Date: 20210323
  Receipt Date: 20220310
  Transmission Date: 20220424
  Serious: Yes (Hospitalization)
  Sender: FDA-Public Use
  Company Number: CN-ROCHE-2792203

PATIENT
  Age: 37 Year
  Sex: Male

DRUGS (6)
  1. ATEZOLIZUMAB [Suspect]
     Active Substance: ATEZOLIZUMAB
     Indication: Hepatocellular carcinoma
     Dosage: DATE OF MOST RECENT DOSE (1200 MG) OF ATEZOLIZUMAB PRIOR TO AE ONSET: 04/DEC/2020?DATE OF MOST RECEN
     Route: 041
     Dates: start: 20181129
  2. BEVACIZUMAB [Suspect]
     Active Substance: BEVACIZUMAB
     Indication: Hepatocellular carcinoma
     Dosage: DATE OF MOST RECENT DOSE (33.33 MG) OF BEVACIZUMAB PRIOR TO AE ONSET: 04/DEC/2020?DATE OF MOST RECEN
     Route: 042
     Dates: start: 20181129
  3. ENTECAVIR [Concomitant]
     Active Substance: ENTECAVIR
     Dates: start: 20181013
  4. LEUCOGEN [Concomitant]
     Active Substance: LEUCOGEN
     Indication: Platelet count decreased
     Dates: start: 20190831
  5. LEUCOGEN [Concomitant]
     Active Substance: LEUCOGEN
     Indication: White blood cell count decreased
  6. RECOMBINANT HUMAN INTERLEUKIN (UNK INGREDIENTS) [Concomitant]
     Dates: start: 20201126, end: 20201201

REACTIONS (1)
  - Hypersplenism [Not Recovered/Not Resolved]

NARRATIVE: CASE EVENT DATE: 20201225
